FAERS Safety Report 19740590 (Version 2)
Quarter: 2022Q1

REPORT INFORMATION
  Report Type: Other
  Country: US (occurrence: None)
  Receive Date: 20210825
  Receipt Date: 20220211
  Transmission Date: 20220423
  Serious: Yes (Other)
  Sender: FDA-Public Use
  Company Number: US-ROCHE-2895373

PATIENT
  Sex: Male

DRUGS (1)
  1. XELODA [Suspect]
     Active Substance: CAPECITABINE
     Indication: Neoplasm malignant
     Dosage: TAKE 2 TABLET(S) BY MOUTH TWICE A DAY DAYS 1-14 OF EACH 21 DAY CYCLE. TAKE WITHIN 30 MINUTES AFTER M
     Route: 048

REACTIONS (1)
  - Cerebrovascular accident [Unknown]
